FAERS Safety Report 10361764 (Version 1)
Quarter: 2014Q3

REPORT INFORMATION
  Report Type: Spontaneous
  Country: MX (occurrence: MX)
  Receive Date: 20140805
  Receipt Date: 20140805
  Transmission Date: 20150326
  Serious: Yes (Death, Hospitalization)
  Sender: FDA-Public Use
  Company Number: MX-UCBSA-2014008064

PATIENT
  Age: 73 Year
  Sex: Male

DRUGS (1)
  1. NUBRENZA [Suspect]
     Active Substance: ROTIGOTINE
     Indication: PARKINSON^S DISEASE
     Dosage: DAILY DOSE: 4 MG
     Route: 003
     Dates: start: 20130201, end: 20140312

REACTIONS (2)
  - Pneumonia aspiration [Fatal]
  - Cardio-respiratory arrest [Fatal]

NARRATIVE: CASE EVENT DATE: 201307
